FAERS Safety Report 17787263 (Version 1)
Quarter: 2020Q2

REPORT INFORMATION
  Report Type: Spontaneous
  Country: US (occurrence: US)
  Receive Date: 20200514
  Receipt Date: 20200514
  Transmission Date: 20200714
  Serious: No
  Sender: FDA-Public Use
  Company Number: US-RIGEL PHARMACEUTICALS, INC.-2020FOS000093

PATIENT
  Age: 51 Year
  Sex: Female
  Weight: 85.26 kg

DRUGS (1)
  1. TAVALISSE [Suspect]
     Active Substance: FOSTAMATINIB
     Indication: IMMUNE THROMBOCYTOPENIA
     Dosage: 100 MG Q AM AND 50 MG Q PM
     Route: 048
     Dates: start: 20180915

REACTIONS (2)
  - Bronchitis [Unknown]
  - Product use issue [Unknown]

NARRATIVE: CASE EVENT DATE: 20180915
